FAERS Safety Report 4322045-2 (Version None)
Quarter: 2004Q1

REPORT INFORMATION
  Report Type: 
  Country: None (occurrence: None)
  Receive Date: 20040319
  Receipt Date: 20040311
  Transmission Date: 20041129
  Serious: Yes (Other)
  Sender: FDA-Public Use
  Company Number: 2004-DE-01020GD

PATIENT
  Age: 16 Year
  Sex: Female

DRUGS (6)
  1. AZATHIOPRINE [Suspect]
     Indication: IMMUNOSUPPRESSION
  2. PREDNISONE [Suspect]
     Indication: IMMUNOSUPPRESSION
  3. METHOTREXATE [Suspect]
     Indication: IMMUNOSUPPRESSION
     Dosage: WEEKLY
  4. CYCLOSPORINE [Suspect]
     Indication: IMMUNOSUPPRESSION
  5. MYCOPHENOLATE (MYCOPHENOLATE MOFETIL) [Suspect]
     Indication: IMMUNOSUPPRESSION
  6. TACROLIMUS (TACROLIMUS) [Suspect]
     Indication: IMMUNOSUPPRESSION

REACTIONS (5)
  - COLITIS [None]
  - RECTAL HAEMORRHAGE [None]
  - RECTAL ULCER [None]
  - TRANSPLANT REJECTION [None]
  - WEIGHT DECREASED [None]
